FAERS Safety Report 24312667 (Version 1)
Quarter: 2024Q3

REPORT INFORMATION
  Report Type: Spontaneous
  Country: US (occurrence: US)
  Receive Date: 20240912
  Receipt Date: 20240912
  Transmission Date: 20241017
  Serious: No
  Sender: BIOVITRUM
  Company Number: US-BIOVITRUM-2024-US-011920

PATIENT
  Age: 18 Year
  Sex: Female

DRUGS (1)
  1. KINERET [Suspect]
     Active Substance: ANAKINRA
     Indication: Autoinflammatory disease
     Dosage: DAILY
     Route: 058
     Dates: start: 20240305

REACTIONS (5)
  - Palpitations [Unknown]
  - Anxiety [Unknown]
  - Illness [Unknown]
  - Streptococcal infection [Unknown]
  - Memory impairment [Unknown]
